FAERS Safety Report 5238729-8 (Version None)
Quarter: 2007Q1

REPORT INFORMATION
  Report Type: 
  Country: None (occurrence: None)
  Receive Date: 20061208
  Receipt Date: 20050203
  Transmission Date: 20070707
  Serious: Yes (Other)
  Sender: FDA-Public Use
  Company Number: 2005UW00195

PATIENT
  Age: 55 Year
  Sex: Female
  Weight: 56.245 kg

DRUGS (4)
  1. CRESTOR [Suspect]
     Indication: BLOOD CHOLESTEROL INCREASED
     Dosage: 10 MG PO
     Route: 048
     Dates: end: 20041201
  2. SINGULAIR [Concomitant]
  3. ADVAIR DISKUS 100/50 [Concomitant]
  4. PROVENTIL INHALER [Concomitant]

REACTIONS (3)
  - DRY SKIN [None]
  - HYPOTRICHOSIS [None]
  - PRURITUS [None]
